FAERS Safety Report 4667770-9 (Version None)
Quarter: 2005Q2

REPORT INFORMATION
  Report Type: 
  Country: None (occurrence: None)
  Receive Date: 20050520
  Receipt Date: 20041203
  Transmission Date: 20051028
  Serious: Yes (Other)
  Sender: FDA-Public Use
  Company Number: GB-GLAXOSMITHKLINE-B0359629A

PATIENT
  Sex: Male

DRUGS (3)
  1. PAROXETINE HCL [Suspect]
     Indication: DEPRESSION
     Dosage: 40MG PER DAY
     Route: 065
     Dates: start: 19990101
  2. VENLAFAXINE HCL [Concomitant]
     Route: 065
  3. ALCOHOL [Concomitant]

REACTIONS (8)
  - AGGRESSION [None]
  - BALANCE DISORDER [None]
  - DRUG WITHDRAWAL SYNDROME [None]
  - ELECTRIC SHOCK [None]
  - ILL-DEFINED DISORDER [None]
  - INSOMNIA [None]
  - INTENTIONAL MISUSE [None]
  - NIGHTMARE [None]
